FAERS Safety Report 24065616 (Version 1)
Quarter: 2024Q3

REPORT INFORMATION
  Report Type: Spontaneous
  Country: IT (occurrence: IT)
  Receive Date: 20240709
  Receipt Date: 20240709
  Transmission Date: 20241017
  Serious: Yes (Hospitalization)
  Sender: FRESENIUS KABI
  Company Number: None

PATIENT
  Age: 53 Year
  Sex: Male
  Weight: 60 kg

DRUGS (4)
  1. PACLITAXEL [Suspect]
     Active Substance: PACLITAXEL
     Indication: Lung neoplasm malignant
     Dosage: 14,4 ML (81,1 MG)?FORM OF ADMIN: SOLUTION FOR INJECTION
     Route: 042
     Dates: start: 20240614, end: 20240614
  2. PACLITAXEL [Suspect]
     Active Substance: PACLITAXEL
     Indication: Lung neoplasm malignant
     Dosage: 81,1 MG?FORM OF ADMIN: SOLUTION FOR INJECTION
     Route: 042
     Dates: start: 20240614, end: 20240614
  3. PACLITAXEL [Suspect]
     Active Substance: PACLITAXEL
     Dosage: 81,1 MG?FORM OF ADMIN: SOLUTION FOR INJECTION
     Route: 042
     Dates: start: 20240614, end: 20240614
  4. CARBOPLATIN [Concomitant]
     Active Substance: CARBOPLATIN
     Indication: Lung neoplasm malignant
     Dosage: 342,5 MG?SOLUTION FOR INJECTION
     Route: 042
     Dates: start: 20240614, end: 20240614

REACTIONS (5)
  - Dyspnoea [Recovered/Resolved]
  - Hypoxia [Recovered/Resolved]
  - Flushing [Recovered/Resolved]
  - Headache [Recovered/Resolved]
  - Nausea [Recovered/Resolved]

NARRATIVE: CASE EVENT DATE: 20240614
